FAERS Safety Report 5140085-0 (Version None)
Quarter: 2006Q4

REPORT INFORMATION
  Report Type: 
  Country: None (occurrence: None)
  Receive Date: 20061026
  Receipt Date: 20061026
  Transmission Date: 20070319
  Serious: Yes (Hospitalization)
  Sender: FDA-Public Use
  Company Number: None

PATIENT
  Sex: Female
  Weight: 82.1 kg

DRUGS (3)
  1. MYFORTIC [Suspect]
     Indication: PROPHYLAXIS AGAINST TRANSPLANT REJECTION
     Dosage: 360MG PO TID
     Route: 048
     Dates: start: 20061002, end: 20061007
  2. PROGRAF [Concomitant]
  3. PREDNISONE TAB [Concomitant]

REACTIONS (3)
  - BLOOD CREATININE INCREASED [None]
  - DRUG DOSE OMISSION [None]
  - STAPHYLOCOCCAL BACTERAEMIA [None]
